FAERS Safety Report 7829813-0 (Version None)
Quarter: 2011Q4

REPORT INFORMATION
  Report Type: 
  Country: None (occurrence: None)
  Receive Date: 20111018
  Receipt Date: 20111005
  Transmission Date: 20120403
  Serious: Yes (Hospitalization)
  Sender: FDA-Public Use
  Company Number: 2011AP002109

PATIENT
  Age: 15 Year
  Sex: Female

DRUGS (2)
  1. PREDNISOLONE [Suspect]
     Indication: HODGKIN'S DISEASE
     Dosage: 40 MG/M**2;QD PO
     Route: 048
  2. CHEMOTHERAPEUTICS (CHEMOTHERAPEUTICS) [Concomitant]

REACTIONS (9)
  - ADRENAL INSUFFICIENCY [None]
  - MALAISE [None]
  - TACHYCARDIA [None]
  - PLATELET COUNT DECREASED [None]
  - SEPTIC SHOCK [None]
  - HAEMOGLOBIN DECREASED [None]
  - COUGH [None]
  - CHILLS [None]
  - WHITE BLOOD CELL COUNT DECREASED [None]
